FAERS Safety Report 6986735-5 (Version None)
Quarter: 2010Q3

REPORT INFORMATION
  Report Type: 
  Country: None (occurrence: None)
  Receive Date: 20100915
  Receipt Date: 20090727
  Transmission Date: 20110219
  Serious: No
  Sender: FDA-Public Use
  Company Number: US-WYE-H10342009

PATIENT
  Sex: Female

DRUGS (3)
  1. PRISTIQ [Suspect]
     Indication: DEPRESSION
     Dosage: 50 MG EVERY 1 TOT
     Route: 048
     Dates: start: 20090723, end: 20090723
  2. ZOLPIDEM [Concomitant]
  3. KLONOPIN [Concomitant]

REACTIONS (4)
  - CHEST PAIN [None]
  - DIARRHOEA [None]
  - PAIN IN EXTREMITY [None]
  - VOMITING [None]
